FAERS Safety Report 21531179 (Version 7)
Quarter: 2023Q4

REPORT INFORMATION
  Report Type: Report from Study
  Country: US (occurrence: US)
  Receive Date: 20221031
  Receipt Date: 20231207
  Transmission Date: 20240110
  Serious: Yes (Hospitalization, Other)
  Sender: FDA-Public Use
  Company Number: US-XERIS PHARMACEUTICALS-2022XER00362

PATIENT
  Age: 45 Year
  Sex: Male
  Weight: 83.9 kg

DRUGS (8)
  1. KEVEYIS [Suspect]
     Active Substance: DICHLORPHENAMIDE
     Indication: Paralysis
     Dosage: 1 TABLET (50 MG), 2X/DAY
     Route: 048
     Dates: start: 201809
  2. KEVEYIS [Suspect]
     Active Substance: DICHLORPHENAMIDE
     Indication: Familial periodic paralysis
     Dosage: 1 TABLET (50 MG), 2X/DAY
     Route: 048
  3. KEVEYIS [Suspect]
     Active Substance: DICHLORPHENAMIDE
     Dosage: 1 TABLET (50 MG), 2X/DAY
     Route: 048
  4. KLOR-CON [Suspect]
     Active Substance: POTASSIUM CHLORIDE
     Dosage: UNK, AS NEEDED
  5. POTASSIUM CHLORIDE [Suspect]
     Active Substance: POTASSIUM CHLORIDE
  6. SPIRONOLACTONE [Concomitant]
     Active Substance: SPIRONOLACTONE
  7. VITAMIN D3 [Concomitant]
     Active Substance: CHOLECALCIFEROL
  8. UNSPECIFIED INGREDIENT [Concomitant]
     Active Substance: UNSPECIFIED INGREDIENT

REACTIONS (26)
  - Oesophageal injury [Recovering/Resolving]
  - Oesophageal haemorrhage [Recovering/Resolving]
  - Haematemesis [Recovering/Resolving]
  - Herpes simplex meningitis [Not Recovered/Not Resolved]
  - Seizure [Unknown]
  - Nephrolithiasis [Unknown]
  - COVID-19 [Unknown]
  - Asthenia [Not Recovered/Not Resolved]
  - Renal impairment [Not Recovered/Not Resolved]
  - Myalgia [Unknown]
  - Oxygen saturation decreased [Unknown]
  - Post-acute COVID-19 syndrome [Unknown]
  - Carbon dioxide abnormal [Unknown]
  - Eye disorder [Unknown]
  - Productive cough [Not Recovered/Not Resolved]
  - Dystonia [Unknown]
  - Myotonia [Unknown]
  - Muscular weakness [Unknown]
  - Illness [Unknown]
  - Emotional distress [Unknown]
  - Product dose omission issue [Unknown]
  - Therapeutic product effect decreased [Not Recovered/Not Resolved]
  - Drug ineffective [Unknown]
  - Paralysis [Unknown]
  - Fatigue [Not Recovered/Not Resolved]
  - Dyspnoea [Unknown]

NARRATIVE: CASE EVENT DATE: 20221001
